FAERS Safety Report 5031785-1 (Version None)
Quarter: 2006Q2

REPORT INFORMATION
  Report Type: 
  Country: None (occurrence: None)
  Receive Date: 20060619
  Receipt Date: 20060531
  Transmission Date: 20061013
  Serious: No
  Sender: FDA-Public Use
  Company Number: 35000

PATIENT

DRUGS (1)
  1. MAXITROL [Suspect]
     Indication: OCULAR HYPERAEMIA
     Route: 047

REACTIONS (1)
  - KERATITIS HERPETIC [None]
